FAERS Safety Report 9370741 (Version 2)
Quarter: 2013Q3

REPORT INFORMATION
  Report Type: Spontaneous
  Country: NL (occurrence: NL)
  Receive Date: 20130626
  Receipt Date: 20130709
  Transmission Date: 20140515
  Serious: Yes (Other)
  Sender: FDA-Public Use
  Company Number: NL-ABBOTT-13P-114-1110202-00

PATIENT
  Sex: Female

DRUGS (2)
  1. HUMIRA [Suspect]
     Indication: PSORIASIS
     Route: 030
     Dates: start: 201208, end: 20130527
  2. DOVOBET [Concomitant]
     Indication: PSORIASIS
     Dosage: CUTANEOUS

REACTIONS (2)
  - Abortion induced [Unknown]
  - Unwanted pregnancy [Unknown]
